FAERS Safety Report 15170418 (Version 1)
Quarter: 2018Q3

REPORT INFORMATION
  Report Type: Spontaneous
  Country: US (occurrence: US)
  Receive Date: 20180622
  Receipt Date: 20180622
  Transmission Date: 20181010
  Serious: Yes (Hospitalization)
  Sender: FDA-Public Use
  Company Number: None

PATIENT
  Age: 54 Year
  Sex: Male

DRUGS (11)
  1. METHOTREXATE. [Concomitant]
     Active Substance: METHOTREXATE
     Dates: start: 20170208
  2. ENBREL [Suspect]
     Active Substance: ETANERCEPT
     Indication: PSORIATIC ARTHROPATHY
     Dosage: ?          OTHER FREQUENCY:EVERY WEEK;?
     Route: 058
     Dates: start: 20150820
  3. ASPIRIN. [Concomitant]
     Active Substance: ASPIRIN
     Dates: start: 20180621
  4. FOLIC ASCID [Concomitant]
     Dates: start: 20170208
  5. NITROGLYCER [Concomitant]
     Dates: start: 20180621
  6. LEXAPRO [Concomitant]
     Active Substance: ESCITALOPRAM OXALATE
     Dates: start: 20180621
  7. BRILINTA [Concomitant]
     Active Substance: TICAGRELOR
     Dates: start: 20180621
  8. ATORVASTATIN [Concomitant]
     Active Substance: ATORVASTATIN
     Dates: start: 20180621
  9. LISINOPRIL. [Concomitant]
     Active Substance: LISINOPRIL
     Dates: start: 20180621
  10. NORCO [Concomitant]
     Active Substance: ACETAMINOPHEN\HYDROCODONE BITARTRATE
     Dates: start: 20170208
  11. LANSOPRAZOLE. [Concomitant]
     Active Substance: LANSOPRAZOLE
     Dates: start: 20170208

REACTIONS (3)
  - Stent placement [None]
  - Depression [None]
  - Myocardial infarction [None]
